FAERS Safety Report 8261633-8 (Version None)
Quarter: 2012Q2

REPORT INFORMATION
  Report Type: 
  Country: None (occurrence: None)
  Receive Date: 20120405
  Receipt Date: 20120323
  Transmission Date: 20120825
  Serious: No
  Sender: FDA-Public Use
  Company Number: US-B.I. PHARMACEUTICALS,INC./RIDGEFIELD-2012-BP-05567BP

PATIENT
  Age: 77 Year
  Sex: Female

DRUGS (5)
  1. PRADAXA [Suspect]
     Indication: ATRIAL FIBRILLATION
     Dosage: 300 MG
     Route: 048
     Dates: start: 20120312
  2. BLOOD PRESSURE MEDICATION [Concomitant]
  3. CORDARONE [Concomitant]
     Indication: ATRIAL FIBRILLATION
     Route: 048
  4. WATER PILLS [Concomitant]
  5. CHOLESTEROL MEDICATION [Concomitant]

REACTIONS (2)
  - HAEMORRHOIDAL HAEMORRHAGE [None]
  - ANAL PRURITUS [None]
